FAERS Safety Report 23498450 (Version 1)
Quarter: 2024Q1

REPORT INFORMATION
  Report Type: Report from Study
  Country: ZA (occurrence: ZA)
  Receive Date: 20240207
  Receipt Date: 20240207
  Transmission Date: 20240409
  Serious: Yes (Hospitalization)
  Sender: FDA-Public Use
  Company Number: ZA-ABBVIE-5620990

PATIENT
  Age: 78 Year
  Sex: Female

DRUGS (1)
  1. VENCLEXTA [Suspect]
     Active Substance: VENETOCLAX
     Indication: Chronic myelomonocytic leukaemia
     Route: 048
     Dates: start: 20211201

REACTIONS (1)
  - Transfusion [Recovering/Resolving]

NARRATIVE: CASE EVENT DATE: 20240115
